FAERS Safety Report 15461205 (Version 2)
Quarter: 2018Q4

REPORT INFORMATION
  Report Type: Spontaneous
  Country: BR (occurrence: BR)
  Receive Date: 20181003
  Receipt Date: 20181008
  Transmission Date: 20190204
  Serious: Yes (Other)
  Sender: FDA-Public Use
  Company Number: BR-PFIZER INC-2018394816

PATIENT
  Age: 68 Year
  Sex: Female

DRUGS (3)
  1. LORAX [Suspect]
     Active Substance: LORAZEPAM
     Dosage: 2 MG, UNK
  2. LORAX [Suspect]
     Active Substance: LORAZEPAM
     Dosage: 2 MG, UNK
  3. LORAX [Suspect]
     Active Substance: LORAZEPAM
     Indication: INSOMNIA
     Dosage: UNK
     Dates: start: 1978

REACTIONS (4)
  - Drug dependence [Unknown]
  - Pyrexia [Unknown]
  - Drug effect variable [Unknown]
  - Deafness bilateral [Unknown]
